FAERS Safety Report 7218091-1 (Version None)
Quarter: 2010Q4

REPORT INFORMATION
  Report Type: 
  Country: None (occurrence: None)
  Receive Date: 20101227
  Receipt Date: 20101216
  Transmission Date: 20110411
  Serious: Yes (Hospitalization)
  Sender: FDA-Public Use
  Company Number: 2010SP043296

PATIENT
  Age: 71 Year
  Sex: Female

DRUGS (10)
  1. MIRTAZAPINE [Suspect]
     Indication: DEPRESSION
     Dosage: 15 MG PO
     Route: 048
     Dates: start: 20100726, end: 20100801
  2. EMEND [Suspect]
     Indication: PREMEDICATION
     Dosage: 125 MG QD PO; 80 MG QD PO
     Route: 048
     Dates: start: 20100728, end: 20100728
  3. EMEND [Suspect]
     Indication: PREMEDICATION
     Dosage: 125 MG QD PO; 80 MG QD PO
     Route: 048
     Dates: start: 20100729, end: 20100801
  4. PACLITAXEL [Suspect]
     Indication: CHEMOTHERAPY
     Dosage: 260 MG QD;
     Dates: start: 20100728, end: 20100729
  5. CARBOPLATIN [Suspect]
     Indication: CHEMOTHERAPY
     Dosage: 500 MG QD;
     Dates: start: 20100728, end: 20100728
  6. DIPHENHYDRAMINE HYDROCHLORIDE [Concomitant]
  7. GRANISETRON HYDROCHLORIDE [Concomitant]
  8. RANITIDINE HYDROCHLORIDE [Concomitant]
  9. DEXAMETHASONE SODIUM PHOSPHATE [Concomitant]
  10. ETODOLAC [Concomitant]

REACTIONS (12)
  - DECREASED APPETITE [None]
  - DEPRESSION [None]
  - DIARRHOEA [None]
  - HYPONATRAEMIA [None]
  - HYPOPHAGIA [None]
  - INSOMNIA [None]
  - MALAISE [None]
  - MALIGNANT PLEURAL EFFUSION [None]
  - NEOPLASM MALIGNANT [None]
  - PLEURAL EFFUSION [None]
  - SOMNOLENCE [None]
  - VOMITING [None]
